FAERS Safety Report 6480853-6 (Version None)
Quarter: 2009Q4

REPORT INFORMATION
  Report Type: 
  Country: None (occurrence: None)
  Receive Date: 20091203
  Receipt Date: 20091118
  Transmission Date: 20100525
  Serious: Yes (Hospitalization, Other)
  Sender: FDA-Public Use
  Company Number: AUR-APL-2009-01363

PATIENT
  Age: 75 Year
  Sex: Female

DRUGS (7)
  1. LISINOPRIL [Suspect]
  2. CARVEDILOL [Suspect]
  3. LASIX [Suspect]
     Dosage: 40MG-DAILY-ORAL
     Route: 048
  4. LIPITOR [Suspect]
  5. ESTROGENS (PREMARIN) [Suspect]
  6. COUMADIN [Suspect]
  7. ENOXAPARIN SODIUM [Suspect]

REACTIONS (1)
  - CARDIAC FAILURE CONGESTIVE [None]
